FAERS Safety Report 9206349 (Version 3)
Quarter: 2013Q2

REPORT INFORMATION
  Report Type: Spontaneous
  Country: CH (occurrence: None)
  Receive Date: 20130401
  Receipt Date: 20130503
  Transmission Date: 20140414
  Serious: Yes (Hospitalization, Other)
  Sender: FDA-Public Use
  Company Number: 2013091186

PATIENT
  Age: 46 Year
  Sex: Female
  Weight: 61 kg

DRUGS (3)
  1. FRAGMIN [Suspect]
     Indication: THROMBOSIS PROPHYLAXIS
     Dosage: 7500 IU, 2X/DAY, SUBCUTANEOUS
     Route: 058
     Dates: start: 20121031, end: 20121108
  2. MARCOUMAR (PHENPROCOUMON) [Concomitant]
  3. TRIATEC (RAMIPRIL) [Concomitant]

REACTIONS (3)
  - Cardiac valve replacement complication [None]
  - Anticoagulation drug level below therapeutic [None]
  - Cerebral infarction [None]
